FAERS Safety Report 8197388 (Version 4)
Quarter: 2012Q4

REPORT INFORMATION
  Report Type: 
  Country: US (occurrence: US)
  Receive Date: 20111024
  Receipt Date: 20121012
  Transmission Date: 20130627
  Serious: Yes (Hospitalization, Other)
  Sender: FDA-Public Use
  Company Number: US-ASTRAZENECA-2011SE62119

PATIENT
  Age: 73 Year
  Sex: Female
  Weight: 60.3 kg

DRUGS (31)
  1. SYMBICORT [Suspect]
     Dosage: 2 P IN AM ONLY
     Route: 055
  2. SYMBICORT [Suspect]
     Dosage: 160 MCG / 4.5 MCG TWO INHALATIONS BY MOUTH ONCE DAILY
     Route: 055
  3. SYMBICORT [Suspect]
     Dosage: UNKNOWN DOSE, Two times a day
     Route: 055
  4. PRILOSEC OTC [Suspect]
     Route: 048
  5. CRESTOR [Suspect]
     Route: 048
  6. ALBUTEROL MDI [Concomitant]
     Dosage: RESCUE USE TWO TIMES PER DAY
  7. TEGRETOL [Concomitant]
     Indication: OCCIPITAL NEURALGIA
  8. ATIVAN [Concomitant]
     Indication: POOR QUALITY SLEEP
  9. PRAVASTATIN [Concomitant]
     Route: 048
  10. AMLODIPINE [Concomitant]
     Route: 048
  11. LABETALOL HCL [Concomitant]
     Route: 048
  12. LOPID [Concomitant]
     Route: 048
  13. PAXIL [Concomitant]
     Route: 048
  14. SPIRONOLACTONE [Concomitant]
     Route: 048
  15. NITROQUICK [Concomitant]
     Dosage: DISSOLVE ONE TABLET UNDER THE TOUNGUE MAY REPEAT EVERY 5 MINUTES. MAXIMUM OF 3 DOSES IN 15 MINUTES
     Route: 060
  16. LORAZEPAM [Concomitant]
     Route: 048
  17. ISOSORBIDE MONONITRATE [Concomitant]
  18. CARBAMAZEPINE [Concomitant]
  19. CARBAMAZEPINE [Concomitant]
  20. PEPCID [Concomitant]
     Indication: DYSPEPSIA
     Dosage: Q 12 H AS NEEDED
     Route: 048
  21. ASPIRIN [Concomitant]
  22. PROAIR HFA [Concomitant]
     Dosage: 90 MCG/1 ACTUATION 2 PUFFS Q 4 TO 6 HRS PRN
     Route: 048
  23. STOOL SOFTNER [Concomitant]
  24. MULTI VITAMIN [Concomitant]
  25. CALCIUM [Concomitant]
  26. VITAMIN D [Concomitant]
  27. TYLENOL [Concomitant]
  28. INFLUENZA VIRUS VACCINE [Concomitant]
     Dates: start: 20081023
  29. INFLUENZA VIRUS VACCINE [Concomitant]
     Dates: start: 20101108
  30. PNEUMOVAX 23 [Concomitant]
     Dates: start: 20000516
  31. PNEUMOVAX 23 [Concomitant]
     Dates: start: 20081023

REACTIONS (34)
  - Cerebrovascular accident [Unknown]
  - Carotid artery stenosis [Unknown]
  - Renal artery stenosis [Unknown]
  - Peripheral artery stenosis [Unknown]
  - Osteomyelitis [Unknown]
  - Pyelonephritis [Unknown]
  - Escherichia sepsis [Unknown]
  - Glaucoma [Unknown]
  - Chronic obstructive pulmonary disease [Unknown]
  - Occipital neuralgia [Not Recovered/Not Resolved]
  - Chest pain [Unknown]
  - Coronary artery disease [Unknown]
  - Hyperlipidaemia [Unknown]
  - Gastrooesophageal reflux disease [Unknown]
  - Impaired gastric emptying [Unknown]
  - Osteoporosis [Unknown]
  - Peripheral vascular disorder [Unknown]
  - Pollakiuria [Unknown]
  - Back pain [Unknown]
  - Metabolic acidosis [Unknown]
  - Anaemia [Unknown]
  - Diverticulum [Unknown]
  - Gastritis [Unknown]
  - Hiatus hernia [Unknown]
  - Hypercholesterolaemia [Unknown]
  - Adverse event [Unknown]
  - Nasopharyngitis [Unknown]
  - Malaise [Unknown]
  - Pain in extremity [Unknown]
  - Dysphonia [Unknown]
  - Diarrhoea [Unknown]
  - Dyspepsia [Unknown]
  - Hypertension [Unknown]
  - Headache [Unknown]
